FAERS Safety Report 16595121 (Version 1)
Quarter: 2019Q3

REPORT INFORMATION
  Report Type: Spontaneous
  Country: IN (occurrence: IN)
  Receive Date: 20190718
  Receipt Date: 20190718
  Transmission Date: 20191004
  Serious: Yes (Other)
  Sender: FDA-Public Use
  Company Number: PHHY2019IN166062

PATIENT
  Age: 63 Year
  Sex: Male

DRUGS (1)
  1. IMATINIB. [Suspect]
     Active Substance: IMATINIB MESYLATE
     Indication: GASTROINTESTINAL STROMAL TUMOUR
     Dosage: 400 MG, UNK
     Route: 065

REACTIONS (6)
  - Gastrointestinal stromal tumour [Recovering/Resolving]
  - Hydronephrosis [Recovered/Resolved]
  - Malignant neoplasm progression [Recovering/Resolving]
  - Therapy non-responder [Unknown]
  - Second primary malignancy [Recovering/Resolving]
  - Follicular dendritic cell sarcoma [Recovering/Resolving]
